FAERS Safety Report 8110989-5 (Version None)
Quarter: 2012Q1

REPORT INFORMATION
  Report Type: 
  Country: None (occurrence: None)
  Receive Date: 20120203
  Receipt Date: 20110131
  Transmission Date: 20120608
  Serious: No
  Sender: FDA-Public Use
  Company Number: US-GLAXOSMITHKLINE-A0910698A

PATIENT
  Age: 44 Year
  Sex: Female

DRUGS (4)
  1. XANAX [Concomitant]
  2. LAMICTAL [Suspect]
     Indication: PRODUCT USED FOR UNKNOWN INDICATION
     Dosage: 150MG PER DAY
     Route: 048
     Dates: start: 20110117
  3. SYNTHROID [Concomitant]
  4. CELEXA [Concomitant]

REACTIONS (3)
  - RASH [None]
  - PRURITUS [None]
  - URTICARIA [None]
